FAERS Safety Report 4806463-1 (Version None)
Quarter: 2005Q4

REPORT INFORMATION
  Report Type: 
  Country: None (occurrence: None)
  Receive Date: 20051021
  Receipt Date: 20051018
  Transmission Date: 20060501
  Serious: Yes (Death, Disabling)
  Sender: FDA-Public Use
  Company Number: 2005UW15687

PATIENT
  Sex: Male

DRUGS (3)
  1. SEROQUEL [Suspect]
     Route: 048
     Dates: start: 20010809, end: 20030601
  2. ABILIFY [Suspect]
     Dates: start: 20010809, end: 20030601
  3. RISPERDAL [Suspect]
     Dates: start: 20010809, end: 20030601

REACTIONS (2)
  - DEATH [None]
  - INJURY [None]
